FAERS Safety Report 18768605 (Version 1)
Quarter: 2021Q1

REPORT INFORMATION
  Report Type: Spontaneous
  Country: US (occurrence: US)
  Receive Date: 20210120
  Receipt Date: 20210120
  Transmission Date: 20210419
  Serious: Yes (Other)
  Sender: FDA-Public Use
  Company Number: None

PATIENT
  Age: 71 Year
  Sex: Male
  Weight: 117 kg

DRUGS (4)
  1. DAPTOMYCIN (DAPTOMYCIN 500MG/VIL INJ) [Suspect]
     Active Substance: DAPTOMYCIN
     Indication: HAEMATOMA
  2. DAPTOMYCIN (DAPTOMYCIN 500MG/VIL INJ) [Suspect]
     Active Substance: DAPTOMYCIN
     Indication: INFECTED FISTULA
  3. PIPERACILLIN/TAZOBACTAM (PIPERACILLIN NA 2GM/TAZOBACTAM NA 0.25ML [Suspect]
     Active Substance: PIPERACILLIN SODIUM\TAZOBACTAM SODIUM
     Indication: INFECTED FISTULA
     Route: 042
     Dates: start: 20201103, end: 20201105
  4. PIPERACILLIN/TAZOBACTAM (PIPERACILLIN NA 2GM/TAZOBACTAM NA 0.25ML [Suspect]
     Active Substance: PIPERACILLIN SODIUM\TAZOBACTAM SODIUM
     Indication: HAEMATOMA
     Route: 042
     Dates: start: 20201103, end: 20201105

REACTIONS (9)
  - Mental status changes [None]
  - Dialysis [None]
  - Pulmonary embolism [None]
  - Duodenal ulcer [None]
  - Haemolytic anaemia [None]
  - Diverticulitis [None]
  - Reticulocyte count increased [None]
  - Refusal of treatment by patient [None]
  - Methaemoglobinaemia [None]

NARRATIVE: CASE EVENT DATE: 20201103
